FAERS Safety Report 8158921-2 (Version None)
Quarter: 2012Q1

REPORT INFORMATION
  Report Type: 
  Country: None (occurrence: None)
  Receive Date: 20120223
  Receipt Date: 20120215
  Transmission Date: 20120608
  Serious: Yes (Other)
  Sender: FDA-Public Use
  Company Number: US-BAYER-2011-080974

PATIENT
  Age: 45 Year
  Sex: Female

DRUGS (1)
  1. MIRENA [Suspect]
     Indication: CONTRACEPTION
     Dosage: 20 MCG/24HR, CONT
     Route: 015
     Dates: start: 20110124, end: 20110718

REACTIONS (6)
  - HYPOMENORRHOEA [None]
  - EMOTIONAL DISORDER [None]
  - MOOD SWINGS [None]
  - CRYING [None]
  - MENSTRUAL DISORDER [None]
  - WEIGHT INCREASED [None]
